FAERS Safety Report 4682207-1 (Version None)
Quarter: 2005Q2

REPORT INFORMATION
  Report Type: 
  Country: None (occurrence: None)
  Receive Date: 20050531
  Receipt Date: 20050216
  Transmission Date: 20051028
  Serious: No
  Sender: FDA-Public Use
  Company Number: 2005BI000380

PATIENT
  Age: 88 Year
  Sex: Female
  Weight: 49.8957 kg

DRUGS (12)
  1. AMEVIVE [Suspect]
     Indication: PSORIASIS
     Dosage: 15 MG; QW; IM  ;  15 MG; QW
     Route: 030
     Dates: start: 20030509, end: 20030606
  2. AMEVIVE [Suspect]
     Indication: PSORIASIS
     Dosage: 15 MG; QW; IM  ;  15 MG; QW
     Route: 030
     Dates: start: 20030707
  3. POTASSIUM CHLORIDE [Concomitant]
  4. FUROSEMIDE [Concomitant]
  5. COUMADIN [Concomitant]
  6. DIGOXIN [Concomitant]
  7. FIORICET [Concomitant]
  8. OXYCONTIN [Concomitant]
  9. TUMS [Concomitant]
  10. TEMAZEPAM [Concomitant]
  11. MULTIVITAMIN [Concomitant]
  12. OCCUVITE [Concomitant]

REACTIONS (1)
  - CD4 LYMPHOCYTES DECREASED [None]
